FAERS Safety Report 26155862 (Version 1)
Quarter: 2025Q4

REPORT INFORMATION
  Report Type: Spontaneous
  Country: US (occurrence: US)
  Receive Date: 20251215
  Receipt Date: 20251215
  Transmission Date: 20260118
  Serious: Yes (Other)
  Sender: ALKEM
  Company Number: None

PATIENT
  Age: 63 Year
  Sex: Male

DRUGS (19)
  1. MYCOPHENOLATE MOFETIL [Suspect]
     Active Substance: MYCOPHENOLATE MOFETIL
     Indication: Immunosuppressant drug therapy
     Dosage: UNK
     Route: 065
  2. MYCOPHENOLATE MOFETIL [Suspect]
     Active Substance: MYCOPHENOLATE MOFETIL
     Dosage: UNK (ENTERIC COATED)
     Route: 065
  3. TACROLIMUS [Suspect]
     Active Substance: TACROLIMUS
     Indication: Immunosuppressant drug therapy
     Dosage: UNK
     Route: 065
  4. METHYLPREDNISOLONE [Suspect]
     Active Substance: METHYLPREDNISOLONE
     Indication: Graft versus host disease in gastrointestinal tract
     Dosage: 1 MILLIGRAM/KILOGRAM, BID
     Route: 065
  5. METHYLPREDNISOLONE [Suspect]
     Active Substance: METHYLPREDNISOLONE
     Indication: Graft versus host disease in skin
     Dosage: 2 MILLIGRAM/KILOGRAM, QD (DOSE INCREASED)
     Route: 065
  6. METHYLPREDNISOLONE [Suspect]
     Active Substance: METHYLPREDNISOLONE
     Dosage: 0.5 MILLIGRAM/KILOGRAM, BID (DOSE DECREASED)
     Route: 065
  7. BASILIXIMAB [Suspect]
     Active Substance: BASILIXIMAB
     Indication: Immunosuppressant drug therapy
     Dosage: UNK
     Route: 065
  8. BUDESONIDE [Suspect]
     Active Substance: BUDESONIDE
     Indication: Graft versus host disease in skin
     Dosage: 3 MILLIGRAM, TID
     Route: 048
  9. BUDESONIDE [Suspect]
     Active Substance: BUDESONIDE
     Indication: Graft versus host disease in gastrointestinal tract
  10. HYDROCORTISONE [Suspect]
     Active Substance: HYDROCORTISONE
     Indication: Graft versus host disease in gastrointestinal tract
     Dosage: UNK, TID
     Route: 061
  11. HYDROCORTISONE [Suspect]
     Active Substance: HYDROCORTISONE
     Indication: Graft versus host disease in skin
  12. ANTI-THYMOCYTE GLOBULIN (RABBIT) NOS [Suspect]
     Active Substance: LAPINE T-LYMPHOCYTE IMMUNE GLOBULIN
     Indication: Immunosuppressant drug therapy
     Dosage: 1.5 MILLIGRAM/KILOGRAM
     Route: 065
  13. RUXOLITINIB [Suspect]
     Active Substance: RUXOLITINIB
     Indication: Graft versus host disease in skin
     Dosage: 375 MILLIGRAM/SQ. METER, ONCE WEEKLY
     Route: 065
  14. RUXOLITINIB [Suspect]
     Active Substance: RUXOLITINIB
     Indication: Epstein-Barr viraemia
     Dosage: 5 MILLIGRAM
     Route: 065
  15. RUXOLITINIB [Suspect]
     Active Substance: RUXOLITINIB
     Indication: Graft versus host disease in liver
     Dosage: 10 MILLIGRAM, QD (EVERY MORNING) (DOSE INCREASED)
     Route: 065
  16. RUXOLITINIB [Suspect]
     Active Substance: RUXOLITINIB
     Indication: Graft versus host disease in gastrointestinal tract
     Dosage: 5 MILLIGRAM, QD (EVERY EVENING)
     Route: 065
  17. RUXOLITINIB [Suspect]
     Active Substance: RUXOLITINIB
     Indication: Graft versus host disease
     Dosage: UNK (TAPERED DOSE)
     Route: 065
  18. TRIAMCINOLONE [Concomitant]
     Active Substance: TRIAMCINOLONE
     Indication: Graft versus host disease in skin
     Dosage: UNK, TID
     Route: 065
  19. URSODIOL [Concomitant]
     Active Substance: URSODIOL
     Indication: Graft versus host disease in liver
     Dosage: 300 MILLIGRAM, TID
     Route: 065

REACTIONS (5)
  - Graft versus host disease in liver [Recovered/Resolved]
  - Epstein-Barr viraemia [Unknown]
  - Graft versus host disease [Recovered/Resolved]
  - Thrombocytopenia [Recovered/Resolved]
  - Seizure [Unknown]
